FAERS Safety Report 8960903 (Version 1)
Quarter: 2012Q4

REPORT INFORMATION
  Report Type: Spontaneous
  Country: US (occurrence: None)
  Receive Date: 20121211
  Receipt Date: 20121211
  Transmission Date: 20130627
  Serious: Yes (Other)
  Sender: FDA-Public Use
  Company Number: None

PATIENT
  Age: 70 Year
  Sex: Male

DRUGS (1)
  1. NICOTINE POLACRILEX GUM [Suspect]
     Indication: NICOTINE CRAVING

REACTIONS (2)
  - Drug administration error [None]
  - Oral bacterial infection [None]
